FAERS Safety Report 20452587 (Version 1)
Quarter: 2022Q1

REPORT INFORMATION
  Report Type: Report from Study
  Country: US (occurrence: US)
  Receive Date: 20220210
  Receipt Date: 20220210
  Transmission Date: 20220424
  Serious: Yes (Hospitalization)
  Sender: FDA-Public Use
  Company Number: US-TAKEDA-2022TUS009061

PATIENT
  Sex: Male

DRUGS (1)
  1. PENTASA [Suspect]
     Active Substance: MESALAMINE
     Indication: Product used for unknown indication
     Dosage: 500 MILLIGRAM
     Route: 065

REACTIONS (2)
  - Hospitalisation [Not Recovered/Not Resolved]
  - Therapy interrupted [Unknown]
